FAERS Safety Report 16372557 (Version 1)
Quarter: 2019Q2

REPORT INFORMATION
  Report Type: Spontaneous
  Country: FR (occurrence: FR)
  Receive Date: 20190530
  Receipt Date: 20190530
  Transmission Date: 20190711
  Serious: Yes (Hospitalization)
  Sender: FDA-Public Use
  Company Number: PHHY2019FR120494

PATIENT
  Age: 7 Year
  Sex: Male
  Weight: 20 kg

DRUGS (1)
  1. VOTRIENT [Suspect]
     Active Substance: PAZOPANIB HYDROCHLORIDE
     Indication: ANGIOSARCOMA
     Dosage: 1 DF, QD
     Route: 048
     Dates: start: 20190412, end: 20190421

REACTIONS (5)
  - Epistaxis [Recovered/Resolved]
  - Hyperammonaemia [Recovered/Resolved]
  - Hypoglycaemia [Recovered/Resolved]
  - Conjunctival hyperaemia [Recovered/Resolved]
  - Lethargy [Recovered/Resolved]

NARRATIVE: CASE EVENT DATE: 201904
